FAERS Safety Report 5790761-1 (Version None)
Quarter: 2008Q2

REPORT INFORMATION
  Report Type: 
  Country: None (occurrence: None)
  Receive Date: 20080626
  Receipt Date: 20080506
  Transmission Date: 20081010
  Serious: No
  Sender: FDA-Public Use
  Company Number: A0726456A

PATIENT
  Age: 51 Year
  Sex: Female
  Weight: 95 kg

DRUGS (3)
  1. ALLI [Suspect]
  2. MEDICATION FOR FLUID RETENTION [Concomitant]
  3. TYLENOL [Concomitant]

REACTIONS (6)
  - CONSTIPATION [None]
  - DIARRHOEA [None]
  - HUNGER [None]
  - INTESTINAL FUNCTIONAL DISORDER [None]
  - RECTAL DISCHARGE [None]
  - WEIGHT INCREASED [None]
